FAERS Safety Report 4461547-5 (Version None)
Quarter: 2004Q3

REPORT INFORMATION
  Report Type: 
  Country: None (occurrence: None)
  Receive Date: 20040907
  Receipt Date: 20040405
  Transmission Date: 20050211
  Serious: Yes (Other)
  Sender: FDA-Public Use
  Company Number: 04-113-0977

PATIENT
  Sex: Male

DRUGS (1)
  1. POLYMYXIN B SULFATE [Suspect]
     Dates: start: 20040201

REACTIONS (1)
  - SKIN HYPERPIGMENTATION [None]
